FAERS Safety Report 8540619-X (Version None)
Quarter: 2012Q3

REPORT INFORMATION
  Report Type: 
  Country: None (occurrence: None)
  Receive Date: 20120726
  Receipt Date: 20120713
  Transmission Date: 20120928
  Serious: Yes (Hospitalization, Other)
  Sender: FDA-Public Use
  Company Number: US-009507513-1201USA02273

PATIENT

DRUGS (9)
  1. FOSAMAX [Suspect]
     Dosage: 70 MG, QW
     Route: 048
     Dates: start: 20001214, end: 20060701
  2. CALCIUM (UNSPECIFIED) [Concomitant]
     Dosage: UNK UNK, BID
     Dates: start: 19800101
  3. SELECTIVE ESTROGEN RECEPTOR MODULATOR (UNSPECIFIED) [Concomitant]
     Dates: start: 19991101, end: 20070101
  4. MK-9278 [Concomitant]
     Dosage: QD
     Dates: start: 19800101
  5. FOSAMAX [Suspect]
     Dosage: 70 MG, UNK
     Route: 048
     Dates: start: 20090205, end: 20100112
  6. SYNTHROID [Concomitant]
     Indication: HYPOTHYROIDISM
     Dates: start: 19800101
  7. EVISTA [Concomitant]
     Indication: OSTEOPOROSIS
     Dosage: 60 MG, QD
     Dates: start: 20000531, end: 20030117
  8. FOSAMAX [Suspect]
     Indication: OSTEOPOROSIS
     Dosage: 10 MG, UNK
     Route: 048
     Dates: start: 20000531, end: 20001213
  9. FOSAMAX PLUS D [Suspect]
     Indication: OSTEOPOROSIS
     Dosage: 70 MG, UNK
     Route: 048
     Dates: start: 20060809, end: 20090101

REACTIONS (25)
  - LOW TURNOVER OSTEOPATHY [None]
  - CATARACT [None]
  - ADVERSE EVENT [None]
  - COUGH [None]
  - BLOOD CALCIUM DECREASED [None]
  - BLOOD CHOLESTEROL INCREASED [None]
  - OSTEOARTHRITIS [None]
  - FEMUR FRACTURE [None]
  - VITAMIN D DEFICIENCY [None]
  - BRONCHITIS [None]
  - ARTHRITIS [None]
  - TYPE V HYPERLIPIDAEMIA [None]
  - TENDON RUPTURE [None]
  - APPENDICITIS [None]
  - MENISCUS LESION [None]
  - ROTATOR CUFF SYNDROME [None]
  - SYMPHYSIOLYSIS [None]
  - DEHYDRATION [None]
  - COLON ADENOMA [None]
  - CERVICOBRACHIAL SYNDROME [None]
  - SPINAL OSTEOARTHRITIS [None]
  - FALL [None]
  - ANKLE FRACTURE [None]
  - CONTUSION [None]
  - DRUG HYPERSENSITIVITY [None]
